FAERS Safety Report 17618556 (Version 5)
Quarter: 2025Q4

REPORT INFORMATION
  Report Type: Spontaneous
  Country: US (occurrence: US)
  Receive Date: 20200402
  Receipt Date: 20251115
  Transmission Date: 20260117
  Serious: No
  Sender: ROCHE
  Company Number: US-ROCHE-2507764

PATIENT
  Age: 69 Year
  Sex: Female
  Weight: 67.59 kg

DRUGS (5)
  1. ERIVEDGE [Suspect]
     Active Substance: VISMODEGIB
     Indication: Congenital anomaly
     Dosage: NEXT DOSE RECEIVED ON 13/AUG/2019
     Route: 048
     Dates: start: 20190715
  2. ERIVEDGE [Suspect]
     Active Substance: VISMODEGIB
     Indication: Basal cell naevus syndrome
     Route: 048
  3. ERIVEDGE [Suspect]
     Active Substance: VISMODEGIB
     Route: 048
  4. ERIVEDGE [Suspect]
     Active Substance: VISMODEGIB
     Route: 048
  5. ERIVEDGE [Suspect]
     Active Substance: VISMODEGIB
     Route: 048

REACTIONS (6)
  - Off label use [Unknown]
  - Rash erythematous [Unknown]
  - Alopecia [Not Recovered/Not Resolved]
  - Product dose omission issue [Unknown]
  - Memory impairment [Unknown]
  - Madarosis [Not Recovered/Not Resolved]

NARRATIVE: CASE EVENT DATE: 20200924
